FAERS Safety Report 9742115 (Version 1)
Quarter: 2013Q4

REPORT INFORMATION
  Report Type: Spontaneous
  Country: US (occurrence: US)
  Receive Date: 20131210
  Receipt Date: 20131210
  Transmission Date: 20140711
  Serious: No
  Sender: FDA-Public Use
  Company Number: US-ENDO PHARMACEUTICALS INC.-CARI20130003

PATIENT
  Age: 48 Year
  Sex: Female

DRUGS (1)
  1. CARISOPRODOL TABLETS 350MG [Suspect]
     Indication: PRODUCT USED FOR UNKNOWN INDICATION
     Route: 048

REACTIONS (2)
  - Arthritis [Unknown]
  - Fibromyalgia [Unknown]
